FAERS Safety Report 21885206 (Version 1)
Quarter: 2023Q1

REPORT INFORMATION
  Report Type: Spontaneous
  Country: US (occurrence: US)
  Receive Date: 20230119
  Receipt Date: 20230119
  Transmission Date: 20230418
  Serious: Yes (Other)
  Sender: FDA-Public Use
  Company Number: US-TEVA-2023-US-2845733

PATIENT
  Age: 36 Year
  Sex: Male

DRUGS (13)
  1. GABAPENTIN [Suspect]
     Active Substance: GABAPENTIN
     Indication: Trigeminal neuropathy
     Dosage: 1800 MILLIGRAM DAILY;
     Route: 048
  2. GABAPENTIN [Suspect]
     Active Substance: GABAPENTIN
     Indication: Herpes zoster
  3. LIDOCAINE [Suspect]
     Active Substance: LIDOCAINE
     Indication: Trigeminal neuropathy
     Dosage: 2% LIDOCAINE, DOSAGE: EVERY 4-6 HOURS AS NEEDED
     Route: 065
  4. LIDOCAINE [Suspect]
     Active Substance: LIDOCAINE
     Indication: Herpes zoster
  5. BACLOFEN [Suspect]
     Active Substance: BACLOFEN
     Indication: Trigeminal neuropathy
     Dosage: 30 MILLIGRAM DAILY; 10MG EVERY 8 HOURS
     Route: 048
  6. BACLOFEN [Suspect]
     Active Substance: BACLOFEN
     Indication: Herpes zoster
  7. NORTRIPTYLINE [Suspect]
     Active Substance: NORTRIPTYLINE
     Indication: Trigeminal neuropathy
     Dosage: 50 MILLIGRAM DAILY;
     Route: 048
  8. NORTRIPTYLINE [Suspect]
     Active Substance: NORTRIPTYLINE
     Indication: Herpes zoster
  9. OXCARBAZEPINE [Suspect]
     Active Substance: OXCARBAZEPINE
     Indication: Trigeminal neuropathy
     Dosage: 300 MILLIGRAM DAILY;
     Route: 048
  10. OXCARBAZEPINE [Suspect]
     Active Substance: OXCARBAZEPINE
     Indication: Herpes zoster
  11. VALACYCLOVIR HYDROCHLORIDE [Concomitant]
     Active Substance: VALACYCLOVIR HYDROCHLORIDE
     Indication: Trigeminal neuropathy
     Dosage: 3 GRAM DAILY;
     Route: 048
  12. VALACYCLOVIR HYDROCHLORIDE [Concomitant]
     Active Substance: VALACYCLOVIR HYDROCHLORIDE
     Indication: Herpes zoster
  13. SERTRALINE [Concomitant]
     Active Substance: SERTRALINE HYDROCHLORIDE
     Indication: Anxiety
     Dosage: 400 MILLIGRAM DAILY;
     Route: 065

REACTIONS (2)
  - Angioedema [Recovered/Resolved with Sequelae]
  - Drug ineffective [Unknown]
